FAERS Safety Report 25766451 (Version 1)
Quarter: 2025Q3

REPORT INFORMATION
  Report Type: Spontaneous
  Country: US (occurrence: None)
  Receive Date: 20250904
  Receipt Date: 20250904
  Transmission Date: 20251020
  Serious: Yes (Other)
  Sender: FDA-CTU
  Company Number: None

PATIENT
  Age: 75 Year
  Sex: Male

DRUGS (2)
  1. VYNDAMAX [Suspect]
     Active Substance: TAFAMIDIS
     Indication: Acquired ATTR amyloidosis
     Dosage: FREQUENCY : DAILY;?
     Route: 048
  2. XARELTO [Suspect]
     Active Substance: RIVAROXABAN

REACTIONS (5)
  - Dyspnoea [None]
  - Fatigue [None]
  - Cerebrovascular accident [None]
  - Prostatic operation [None]
  - Post procedural complication [None]
